FAERS Safety Report 13318971 (Version 2)
Quarter: 2017Q2

REPORT INFORMATION
  Report Type: Spontaneous
  Country: US (occurrence: US)
  Receive Date: 20170310
  Receipt Date: 20170413
  Transmission Date: 20170830
  Serious: Yes (Hospitalization, Other)
  Sender: FDA-Public Use
  Company Number: US-TAIHO ONCOLOGY INC-EU-2017-00420

PATIENT
  Age: 53 Year
  Sex: Female
  Weight: 112.86 kg

DRUGS (16)
  1. LONSURF [Suspect]
     Active Substance: TIPIRACIL HYDROCHLORIDE\TRIFLURIDINE
     Indication: COLON CANCER METASTATIC
     Route: 048
     Dates: start: 20161201, end: 20170209
  2. PANTOPRAZOLE [Concomitant]
     Active Substance: PANTOPRAZOLE
     Route: 048
     Dates: start: 20150618
  3. EFFEXOR XR [Concomitant]
     Active Substance: VENLAFAXINE HYDROCHLORIDE
     Indication: DEPRESSION
     Route: 048
     Dates: start: 20170105
  4. PROMETHAZINE [Concomitant]
     Active Substance: PROMETHAZINE\PROMETHAZINE HYDROCHLORIDE
     Indication: VOMITING
  5. JANUVIA [Concomitant]
     Active Substance: SITAGLIPTIN PHOSPHATE
     Route: 048
     Dates: start: 20161010
  6. LISINOPRIL. [Concomitant]
     Active Substance: LISINOPRIL
     Route: 048
     Dates: start: 20150618
  7. GABAPENTIN. [Concomitant]
     Active Substance: GABAPENTIN
     Route: 048
     Dates: start: 20160712
  8. POTASSIUM CHLORIDE. [Concomitant]
     Active Substance: POTASSIUM CHLORIDE
     Route: 048
     Dates: start: 20150618
  9. POTASSIUM CHLORIDE. [Concomitant]
     Active Substance: POTASSIUM CHLORIDE
     Route: 048
     Dates: start: 20150618
  10. LOPERAMIDE [Concomitant]
     Active Substance: LOPERAMIDE
     Route: 048
     Dates: start: 20161208
  11. ZOFRAN [Concomitant]
     Active Substance: ONDANSETRON HYDROCHLORIDE
     Indication: NAUSEA
     Dosage: AS NEEDED
     Route: 048
     Dates: start: 20160125
  12. METOPROLOL TARTRATE. [Concomitant]
     Active Substance: METOPROLOL TARTRATE
     Route: 048
     Dates: start: 20150618
  13. PROMETHAZINE [Concomitant]
     Active Substance: PROMETHAZINE\PROMETHAZINE HYDROCHLORIDE
     Indication: NAUSEA
     Dosage: EVERY 4 TO 6 HOURS
     Route: 048
     Dates: start: 20161201
  14. ZOFRAN [Concomitant]
     Active Substance: ONDANSETRON HYDROCHLORIDE
     Indication: VOMITING
     Dosage: AS NEEDED
     Route: 048
     Dates: start: 20150618
  15. CITALOPRAM [Concomitant]
     Active Substance: CITALOPRAM HYDROBROMIDE
     Route: 048
     Dates: start: 20150618
  16. CLINDAMYCIN. [Concomitant]
     Active Substance: CLINDAMYCIN
     Dosage: TWO FOR THE FIRST DOSE THEN 1 EVERY 6 HOURS
     Route: 048
     Dates: start: 20160316

REACTIONS (23)
  - Pain [Unknown]
  - Hypokalaemia [Recovered/Resolved]
  - Hepatic cirrhosis [Unknown]
  - Confusional state [Recovered/Resolved]
  - Hepatomegaly [Unknown]
  - Disorientation [Recovered/Resolved]
  - Bronchitis [Unknown]
  - Leukopenia [Unknown]
  - Abdominal pain [Unknown]
  - Thrombocytopenia [Unknown]
  - Hypomagnesaemia [Unknown]
  - Lymphadenopathy [Recovered/Resolved]
  - Liver function test abnormal [Recovered/Resolved]
  - Hypersplenism [Unknown]
  - Febrile neutropenia [Recovered/Resolved]
  - Back pain [Unknown]
  - Paraesthesia [Unknown]
  - Hypoaesthesia [Unknown]
  - Enterocolitis [Recovered/Resolved]
  - Fatigue [Not Recovered/Not Resolved]
  - Disease progression [Unknown]
  - Diarrhoea [Unknown]
  - Abdominal pain lower [Unknown]

NARRATIVE: CASE EVENT DATE: 2017
